FAERS Safety Report 4712192-5 (Version None)
Quarter: 2005Q3

REPORT INFORMATION
  Report Type: 
  Country: None (occurrence: None)
  Receive Date: 20050712
  Receipt Date: 20050701
  Transmission Date: 20060218
  Serious: Yes (Hospitalization, Other)
  Sender: FDA-Public Use
  Company Number: CH-BRISTOL-MYERS SQUIBB COMPANY-13025044

PATIENT
  Age: 70 Year
  Sex: Female

DRUGS (19)
  1. COAPROVEL [Suspect]
  2. TORSEMIDE [Suspect]
  3. VENTOLIN [Concomitant]
  4. SERETIDE [Concomitant]
  5. IPRATROPIUM + SALBUTAMOL [Concomitant]
  6. SPIRIVA [Concomitant]
  7. UNIFYL [Concomitant]
  8. FLUIMUCIL [Concomitant]
  9. NASONEX [Concomitant]
  10. TAMBOCOR [Concomitant]
  11. DILTIAZEM [Concomitant]
  12. MOTILIUM [Concomitant]
  13. CALCIMAGON-D3 [Concomitant]
  14. FEMOSTON [Concomitant]
  15. NEXIUM [Concomitant]
  16. FERRUM [Concomitant]
  17. DORMICUM [Concomitant]
  18. SINTROM [Concomitant]
  19. AZOPT [Concomitant]

REACTIONS (6)
  - DERMATITIS EXFOLIATIVE [None]
  - EOSINOPHILIA [None]
  - HERPES ZOSTER [None]
  - MYCOSIS FUNGOIDES [None]
  - OEDEMA PERIPHERAL [None]
  - ORTHOPNOEA [None]
